FAERS Safety Report 4286684-X (Version None)
Quarter: 2004Q1

REPORT INFORMATION
  Report Type: 
  Country: None (occurrence: None)
  Receive Date: 20040204
  Receipt Date: 20040123
  Transmission Date: 20041129
  Serious: Yes (Hospitalization, Other)
  Sender: FDA-Public Use
  Company Number: HQWYE718204NOV03

PATIENT
  Age: 58 Year
  Sex: Male

DRUGS (7)
  1. RAPAMUNE [Suspect]
     Indication: PROPHYLAXIS AGAINST TRANSPLANT REJECTION
     Dosage: 2 MG 1X PER 1 DAY
     Route: 048
     Dates: start: 20020411
  2. FUROSEMIDE [Concomitant]
  3. ATORVASTATIN CALCIUM [Concomitant]
  4. CARVEDILOL [Concomitant]
  5. DOXAZOSIN MESYLATE [Concomitant]
  6. MYCOPHENOLATE MOFETIL (MYCOPHENOLATE MOFEIL, ) [Suspect]
     Indication: PROPHYLAXIS AGAINST TRANSPLANT REJECTION
     Dosage: 500 MG 1X PER 1 DAY
  7. PREDNISONE [Suspect]
     Indication: PROPHYLAXIS AGAINST TRANSPLANT REJECTION
     Dosage: 5 MG 1X PER 1 DAY
     Route: 048

REACTIONS (5)
  - ARTERIOVENOUS FISTULA, ACQUIRED [None]
  - ATRIAL FIBRILLATION [None]
  - INTESTINAL HYPOMOTILITY [None]
  - INTESTINAL OBSTRUCTION [None]
  - PNEUMONIA [None]
